FAERS Safety Report 15157505 (Version 3)
Quarter: 2018Q3

REPORT INFORMATION
  Report Type: Spontaneous
  Country: US (occurrence: US)
  Receive Date: 20180718
  Receipt Date: 20180723
  Transmission Date: 20181010
  Serious: No
  Sender: FDA-Public Use
  Company Number: US-TEVA-2018-US-927746

PATIENT
  Sex: Female

DRUGS (2)
  1. PROPRANOLOL HYDROCHLORIDE. [Suspect]
     Active Substance: PROPRANOLOL HYDROCHLORIDE
     Dosage: 40 MILLIGRAM DAILY;
     Route: 065
  2. NIFEDIPINE. [Concomitant]
     Active Substance: NIFEDIPINE
     Indication: HYPERTENSION
     Route: 065

REACTIONS (5)
  - Product taste abnormal [Unknown]
  - Abdominal discomfort [Unknown]
  - Dizziness [Unknown]
  - Product use in unapproved indication [Unknown]
  - Product quality issue [Unknown]
